FAERS Safety Report 4513464-X (Version None)
Quarter: 2004Q4

REPORT INFORMATION
  Report Type: 
  Country: None (occurrence: None)
  Receive Date: 20041130
  Receipt Date: 20041028
  Transmission Date: 20050328
  Serious: No
  Sender: FDA-Public Use
  Company Number: US-BRISTOL-MYERS SQUIBB COMPANY-12749271

PATIENT
  Age: 57 Year
  Sex: Male
  Weight: 79 kg

DRUGS (3)
  1. ERBITUX [Suspect]
     Indication: NEOPLASM MALIGNANT
     Route: 042
     Dates: start: 20041014, end: 20041014
  2. COUGH MEDICATION [Concomitant]
  3. MORPHINE SULFATE [Concomitant]
     Route: 061

REACTIONS (6)
  - ASTHENIA [None]
  - FATIGUE [None]
  - HEADACHE [None]
  - PYREXIA [None]
  - RASH [None]
  - VOMITING [None]
